FAERS Safety Report 26020159 (Version 1)
Quarter: 2025Q4

REPORT INFORMATION
  Report Type: Spontaneous
  Country: US (occurrence: US)
  Receive Date: 20251110
  Receipt Date: 20251110
  Transmission Date: 20260119
  Serious: No
  Sender: TENSHI KAIZEN PRIVATE LIMITED
  Company Number: US-TENSHI KAIZEN PRIVATE LIMITED-2025TK000103

PATIENT
  Age: 60 Year
  Sex: Female
  Weight: 77.1 kg

DRUGS (1)
  1. LORATADINE [Suspect]
     Active Substance: LORATADINE
     Indication: Seasonal allergy
     Dosage: UNK, QD
     Route: 048

REACTIONS (3)
  - Therapeutic product effect decreased [Unknown]
  - Product taste abnormal [Unknown]
  - Product physical issue [Unknown]
